FAERS Safety Report 10727174 (Version 8)
Quarter: 2018Q2

REPORT INFORMATION
  Report Type: Report from Study
  Country: US (occurrence: US)
  Receive Date: 20150121
  Receipt Date: 20180426
  Transmission Date: 20180711
  Serious: Yes (Death, Life-Threatening, Hospitalization)
  Sender: FDA-Public Use
  Company Number: US-ACTELION-A-NJ2015-110767

PATIENT
  Age: 73 Year
  Sex: Female
  Weight: 54.42 kg

DRUGS (4)
  1. VENTAVIS [Suspect]
     Active Substance: ILOPROST
     Dosage: 5 MCG, 6-9X/DAY
     Route: 055
  2. ADCIRCA [Concomitant]
     Active Substance: TADALAFIL
  3. VENTAVIS [Suspect]
     Active Substance: ILOPROST
     Indication: PULMONARY HYPERTENSION
     Dosage: 5 MCG, 6X/DAY
     Route: 055
     Dates: start: 20140707
  4. TRACLEER [Suspect]
     Active Substance: BOSENTAN
     Indication: PULMONARY HYPERTENSION
     Dosage: 125 MG, BID
     Route: 048

REACTIONS (15)
  - Anaemia [Recovering/Resolving]
  - Acute myocardial infarction [Recovering/Resolving]
  - Left ventricular failure [Recovering/Resolving]
  - Fluid overload [Unknown]
  - Dyspnoea [Unknown]
  - Dyspnoea exertional [Unknown]
  - Blood magnesium decreased [Recovering/Resolving]
  - Renal failure [Unknown]
  - Diarrhoea [Unknown]
  - Asthenia [Recovering/Resolving]
  - Vomiting [Recovered/Resolved]
  - Oedema [Unknown]
  - Death [Fatal]
  - Gastrointestinal haemorrhage [Recovered/Resolved]
  - Fluid retention [Unknown]

NARRATIVE: CASE EVENT DATE: 20141217
